FAERS Safety Report 16284587 (Version 1)
Quarter: 2019Q2

REPORT INFORMATION
  Report Type: Spontaneous
  Country: US (occurrence: US)
  Receive Date: 20190508
  Receipt Date: 20190508
  Transmission Date: 20190711
  Serious: Yes (Hospitalization)
  Sender: FDA-Public Use
  Company Number: US-TEVA-2019-US-1048317

PATIENT
  Age: 38 Year
  Sex: Male

DRUGS (6)
  1. METOPROLOL SUCCINATE. [Concomitant]
     Active Substance: METOPROLOL SUCCINATE
  2. BENZTROPINE MESYLATE 0.5 MG TABLET [Concomitant]
  3. ABILIFY 10 MG TABLET [Concomitant]
  4. AUSTEDO [Suspect]
     Active Substance: DEUTETRABENAZINE
     Indication: TARDIVE DYSKINESIA
     Dosage: 48 MILLIGRAM DAILY;
     Route: 048
     Dates: start: 201809
  5. PROZAC 10 MG CAPSULE [Concomitant]
  6. ATIVAN 0.5 MG TABLET [Concomitant]

REACTIONS (8)
  - Headache [Unknown]
  - Chest pain [Unknown]
  - Increased appetite [Unknown]
  - Suicidal ideation [Unknown]
  - Hallucination, auditory [Unknown]
  - Dry mouth [Unknown]
  - Hypertension [Unknown]
  - Dizziness [Unknown]

NARRATIVE: CASE EVENT DATE: 201903
